FAERS Safety Report 17438304 (Version 1)
Quarter: 2020Q1

REPORT INFORMATION
  Report Type: Spontaneous
  Country: SK (occurrence: SK)
  Receive Date: 20200220
  Receipt Date: 20200220
  Transmission Date: 20200409
  Serious: Yes (Hospitalization)
  Sender: FDA-Public Use
  Company Number: SK-TEVA-2020-SK-1188259

PATIENT
  Age: 49 Year
  Sex: Female
  Weight: 54 kg

DRUGS (1)
  1. TERBINAFINE. [Suspect]
     Active Substance: TERBINAFINE
     Indication: ONYCHOMYCOSIS
     Dosage: 250 MILLIGRAM DAILY;
     Dates: start: 201911, end: 202001

REACTIONS (4)
  - Pruritus [Recovered/Resolved]
  - Rash macular [Recovered/Resolved]
  - Visual impairment [Recovered/Resolved]
  - Alopecia [Recovered/Resolved]
